FAERS Safety Report 18457746 (Version 3)
Quarter: 2021Q4

REPORT INFORMATION
  Report Type: Spontaneous
  Country: US (occurrence: US)
  Receive Date: 20201103
  Receipt Date: 20211022
  Transmission Date: 20220303
  Serious: No
  Sender: FDA-Public Use
  Company Number: US-HORIZON-2020HZN00749

PATIENT
  Sex: Female

DRUGS (1)
  1. PROCYSBI [Suspect]
     Active Substance: CYSTEAMINE BITARTRATE
     Indication: Cystinosis
     Dosage: 150MG (2 X 75MG CAPSULES) EVERY 12 HOURS 2 SEPARATED DOSES
     Route: 048

REACTIONS (1)
  - Malaise [Not Recovered/Not Resolved]
